FAERS Safety Report 9944814 (Version 1)
Quarter: 2014Q1

REPORT INFORMATION
  Report Type: Report from Study
  Country: US (occurrence: US)
  Receive Date: 20140303
  Receipt Date: 20140303
  Transmission Date: 20141002
  Serious: No
  Sender: FDA-Public Use
  Company Number: US-ABBVIE-13P-163-1052914-00

PATIENT
  Age: 57 Year
  Sex: Female

DRUGS (5)
  1. HUMIRA [Suspect]
     Indication: CROHN^S DISEASE
     Dates: start: 201110
  2. LEVOTHYROXINE [Concomitant]
     Indication: HYPOTHYROIDISM
     Dosage: 150 MCG DAILY
     Route: 048
  3. OMEPRAZOLE [Concomitant]
     Indication: GASTROOESOPHAGEAL REFLUX DISEASE
     Route: 048
  4. VITAMIN D [Concomitant]
     Indication: VITAMIN D DECREASED
     Dosage: 2000 IU DAILY
     Route: 048
  5. VITAMIN B12 (CYANOCOBALAMIN AND ANALOGUES) [Concomitant]
     Indication: MALABSORPTION
     Route: 030
     Dates: start: 201201

REACTIONS (3)
  - Device malfunction [Not Recovered/Not Resolved]
  - Device malfunction [Not Recovered/Not Resolved]
  - Malabsorption [Unknown]
